FAERS Safety Report 20623663 (Version 4)
Quarter: 2022Q2

REPORT INFORMATION
  Report Type: Report from Study
  Country: FR (occurrence: FR)
  Receive Date: 20220322
  Receipt Date: 20220606
  Transmission Date: 20220721
  Serious: Yes (Other)
  Sender: FDA-Public Use
  Company Number: FR-NOVARTISPH-NVSC2022FR016470

PATIENT
  Sex: Male
  Weight: 70 kg

DRUGS (4)
  1. PIQRAY [Suspect]
     Active Substance: ALPELISIB
     Indication: Meningioma
     Dosage: 100 MG, QD
     Route: 048
  2. PIQRAY [Suspect]
     Active Substance: ALPELISIB
     Indication: Activated PI3 kinase delta syndrome
     Dosage: 150 MG, QD
     Route: 048
     Dates: start: 20211130, end: 20211216
  3. PIQRAY [Suspect]
     Active Substance: ALPELISIB
     Dosage: 50 MG, QD
     Route: 048
     Dates: start: 20220111
  4. PIQRAY [Suspect]
     Active Substance: ALPELISIB
     Dosage: (50 MG X 2) QD
     Route: 048
     Dates: end: 20220405

REACTIONS (7)
  - Diarrhoea [Recovered/Resolved]
  - Abdominal distension [Unknown]
  - Abdominal pain [Unknown]
  - Frequent bowel movements [Unknown]
  - Mucosal inflammation [Recovering/Resolving]
  - Malignant neoplasm progression [Unknown]
  - Nervous system disorder [Unknown]

NARRATIVE: CASE EVENT DATE: 20211207
